FAERS Safety Report 25058279 (Version 1)
Quarter: 2025Q1

REPORT INFORMATION
  Report Type: Spontaneous
  Country: US (occurrence: None)
  Receive Date: 20250308
  Receipt Date: 20250308
  Transmission Date: 20250408
  Serious: Yes (Hospitalization)
  Sender: FDA-CTU
  Company Number: None

PATIENT
  Age: 61 Year
  Sex: Male
  Weight: 52.2 kg

DRUGS (6)
  1. IOHEXOL [Suspect]
     Active Substance: IOHEXOL
  2. LEVETIRACETAM [Concomitant]
     Active Substance: LEVETIRACETAM
  3. METHADONE [Concomitant]
     Active Substance: METHADONE HYDROCHLORIDE
  4. NALOXONE [Concomitant]
     Active Substance: NALOXONE
  5. ONDANSETRON [Concomitant]
     Active Substance: ONDANSETRON
  6. OLANZAPINE [Concomitant]
     Active Substance: OLANZAPINE

REACTIONS (1)
  - Seizure [None]

NARRATIVE: CASE EVENT DATE: 20250114
